FAERS Safety Report 8052166-2 (Version None)
Quarter: 2012Q1

REPORT INFORMATION
  Report Type: 
  Country: None (occurrence: None)
  Receive Date: 20120118
  Receipt Date: 20120112
  Transmission Date: 20120608
  Serious: No
  Sender: FDA-Public Use
  Company Number: US-PFIZER INC-2012010924

PATIENT
  Age: 14 Year
  Sex: Female
  Weight: 44.444 kg

DRUGS (2)
  1. VORICONAZOLE [Suspect]
     Dosage: 7 MG/KG, 2X/DAY
     Route: 042
     Dates: start: 20111201, end: 20120104
  2. VORICONAZOLE [Suspect]
     Indication: ASPERGILLOSIS
     Dosage: 7 MG/KG, 2X/DAY
     Route: 042
     Dates: start: 20111201, end: 20120104

REACTIONS (1)
  - DRUG LEVEL DECREASED [None]
